FAERS Safety Report 5449185-9 (Version None)
Quarter: 2007Q3

REPORT INFORMATION
  Report Type: 
  Country: None (occurrence: None)
  Receive Date: 20070911
  Receipt Date: 20070907
  Transmission Date: 20080115
  Serious: Yes (Hospitalization)
  Sender: FDA-Public Use
  Company Number: US-BOEHRINGER INGELHEIM PHARMACEUTICALS, INC.-2007-BP-19778BP

PATIENT
  Sex: Female

DRUGS (3)
  1. COMBIVENT [Suspect]
     Indication: CHRONIC OBSTRUCTIVE PULMONARY DISEASE
     Route: 055
     Dates: start: 20011201
  2. ADVAIR DISKUS 100/50 [Concomitant]
     Dates: start: 20011201
  3. ALBUTEROL [Concomitant]
     Dates: start: 20011201

REACTIONS (1)
  - CORONARY ARTERY BYPASS [None]
